FAERS Safety Report 8761936 (Version 1)
Quarter: 2012Q4

REPORT INFORMATION
  Report Type: 
  Country: US (occurrence: US)
  Receive Date: 20120830
  Receipt Date: 20120830
  Transmission Date: 20130627
  Serious: No
  Sender: FDA-Public Use
  Company Number: US-BAYER-2012-090023

PATIENT
  Sex: Female

DRUGS (4)
  1. BETASERON [Suspect]
     Dosage: 0.3 mg, QOD
     Route: 058
  2. ZOLPIDEM [Concomitant]
     Dosage: 10 mg, UNK
  3. NORTRIPTYLIN [Concomitant]
     Dosage: 25 mg, UNK
  4. TYLENOL [PARACETAMOL] [Concomitant]
     Dosage: 325 mg, UNK

REACTIONS (2)
  - Injection site erythema [Unknown]
  - Injection site haematoma [Unknown]
